FAERS Safety Report 9167040 (Version 2)
Quarter: 2013Q2

REPORT INFORMATION
  Report Type: Spontaneous
  Country: CA (occurrence: CA)
  Receive Date: 20130318
  Receipt Date: 20130627
  Transmission Date: 20140414
  Serious: Yes (Other)
  Sender: FDA-Public Use
  Company Number: CA-AMGEN-CANSP2013002060

PATIENT
  Age: 79 Year
  Sex: Female

DRUGS (12)
  1. ENBREL [Suspect]
     Indication: RHEUMATOID ARTHRITIS
     Dosage: 25 MG, UNK
     Route: 065
     Dates: start: 20121227, end: 20130217
  2. ATACAND [Concomitant]
     Dosage: UNK
  3. PREDNISONE [Concomitant]
     Dosage: 5 MG, UNK
  4. PREDNISONE [Concomitant]
     Dosage: NOW TAKING 4 PREDNISONE OD X 3 DAYS, THEN TO REDUCE TO 3 X 3DAYS, THEN TO 2 X 3 DAYS AND BACK TO 1
  5. PANTOPRAZOLE [Concomitant]
     Dosage: UNK
  6. ENDOCET [Concomitant]
     Indication: PAIN
     Dosage: 1/2 TAB
  7. CLARITIN                           /00413701/ [Concomitant]
     Dosage: UNK
  8. CALCIUM [Concomitant]
     Dosage: UNK
  9. VITAMIN D3 [Concomitant]
     Dosage: UNK
  10. CANDESARTAN [Concomitant]
     Dosage: UNK
  11. GLUCOSAMINE [Concomitant]
     Dosage: UNK
  12. NUTRIFLEX                          /07393601/ [Concomitant]
     Dosage: UNK

REACTIONS (18)
  - Generalised erythema [Recovering/Resolving]
  - Skin burning sensation [Recovering/Resolving]
  - Inflammation [Recovering/Resolving]
  - Rash [Recovering/Resolving]
  - Erythema [Recovering/Resolving]
  - Local swelling [Not Recovered/Not Resolved]
  - Fluid retention [Not Recovered/Not Resolved]
  - Pruritus [Recovering/Resolving]
  - Hypertension [Unknown]
  - Diarrhoea [Unknown]
  - Pain in extremity [Recovering/Resolving]
  - Vascular rupture [Recovering/Resolving]
  - Injection site bruising [Not Recovered/Not Resolved]
  - Injection site reaction [Not Recovered/Not Resolved]
  - Injection site pruritus [Not Recovered/Not Resolved]
  - Injection site rash [Not Recovered/Not Resolved]
  - Injection site swelling [Not Recovered/Not Resolved]
  - Injection site erythema [Not Recovered/Not Resolved]
